FAERS Safety Report 18242224 (Version 1)
Quarter: 2020Q3

REPORT INFORMATION
  Report Type: Spontaneous
  Country: PT (occurrence: PT)
  Receive Date: 20200908
  Receipt Date: 20200908
  Transmission Date: 20201103
  Serious: Yes (Death, Hospitalization, Other)
  Sender: FDA-Public Use
  Company Number: PT-GILEAD-2020-0493809

PATIENT
  Age: 50 Year
  Sex: Male

DRUGS (1)
  1. EPCLUSA [Suspect]
     Active Substance: SOFOSBUVIR\VELPATASVIR
     Indication: HEPATITIS C
     Dosage: UNK
     Route: 065
     Dates: start: 202003, end: 20200704

REACTIONS (5)
  - Death [Fatal]
  - Peritonitis bacterial [Unknown]
  - Bacteraemia [Unknown]
  - Hepatic cirrhosis [Not Recovered/Not Resolved]
  - Hepatic encephalopathy [Unknown]

NARRATIVE: CASE EVENT DATE: 2020
